FAERS Safety Report 6194720-9 (Version None)
Quarter: 2009Q2

REPORT INFORMATION
  Report Type: 
  Country: None (occurrence: None)
  Receive Date: 20090519
  Receipt Date: 20090507
  Transmission Date: 20091009
  Serious: Yes (Other)
  Sender: FDA-Public Use
  Company Number: DE-PFIZER INC-2009209861

PATIENT
  Age: 28 Year

DRUGS (1)
  1. CLINDAMYCIN HCL [Suspect]
     Indication: PERIODONTITIS
     Dosage: 600 MG, 2X/DAY
     Route: 048

REACTIONS (3)
  - DIARRHOEA [None]
  - GASTRIC HAEMORRHAGE [None]
  - GASTROINTESTINAL DISORDER [None]
